FAERS Safety Report 6437674-X (Version None)
Quarter: 2009Q4

REPORT INFORMATION
  Report Type: 
  Country: None (occurrence: None)
  Receive Date: 20091112
  Receipt Date: 20091106
  Transmission Date: 20100525
  Serious: Yes (Hospitalization)
  Sender: FDA-Public Use
  Company Number: B0596475A

PATIENT
  Sex: Male
  Weight: 58 kg

DRUGS (15)
  1. ZOVIRAX [Suspect]
     Indication: HERPES ZOSTER
     Dosage: 800MG TWICE PER DAY
     Route: 048
     Dates: start: 20090929, end: 20091002
  2. ARTIST [Concomitant]
     Dosage: 2.5MG PER DAY
     Route: 048
  3. ALOSITOL [Concomitant]
     Dosage: 100MG PER DAY
     Route: 048
  4. CALFINA [Concomitant]
     Dosage: 1MCG PER DAY
     Route: 048
  5. THYRADIN S [Concomitant]
     Dosage: 100MCG PER DAY
     Route: 048
  6. CLARITH [Concomitant]
     Dosage: 400MG PER DAY
     Route: 048
  7. BUFFERIN [Concomitant]
     Dosage: 81MG PER DAY
     Route: 048
  8. BLOPRESS [Concomitant]
     Dosage: 2MG PER DAY
     Route: 048
  9. PIMOBENDAN [Concomitant]
     Dosage: 1.25MG PER DAY
     Route: 048
  10. LANSOPRAZOLE [Concomitant]
     Dosage: 15MG PER DAY
     Route: 048
  11. UNKNOWN DRUG [Concomitant]
     Dosage: 15MG PER DAY
     Route: 048
  12. SELBEX [Concomitant]
     Dosage: 15MG PER DAY
     Route: 048
  13. ENTERONON-R [Concomitant]
     Dosage: 3G PER DAY
     Route: 048
  14. CALTAN [Concomitant]
     Dosage: 1500MG PER DAY
     Route: 048
  15. ZOVIRAX [Concomitant]
     Route: 061
     Dates: start: 20090926

REACTIONS (2)
  - ALTERED STATE OF CONSCIOUSNESS [None]
  - DRUG TOXICITY [None]
